FAERS Safety Report 5429975-9 (Version None)
Quarter: 2007Q3

REPORT INFORMATION
  Report Type: 
  Country: None (occurrence: None)
  Receive Date: 20070829
  Receipt Date: 20070816
  Transmission Date: 20080115
  Serious: Yes (Death)
  Sender: FDA-Public Use
  Company Number: KH-BOEHRINGER INGELHEIM PHARMACEUTICALS, INC.-2007-DE-04828GD

PATIENT

DRUGS (3)
  1. NEVIRAPINE [Suspect]
     Indication: HIV INFECTION
  2. 3TC [Suspect]
     Indication: HIV INFECTION
  3. D4T [Suspect]
     Indication: HIV INFECTION

REACTIONS (2)
  - DEATH [None]
  - IMMUNE RECONSTITUTION SYNDROME [None]
